FAERS Safety Report 11071596 (Version 1)
Quarter: 2015Q2

REPORT INFORMATION
  Report Type: Spontaneous
  Country: TR (occurrence: None)
  Receive Date: 20150424
  Receipt Date: 20150424
  Transmission Date: 20150821
  Serious: Yes (Hospitalization, Other)
  Sender: FDA-Public Use
  Company Number: TR-SYDUZ-007641

PATIENT
  Age: 58 Year
  Sex: Male

DRUGS (3)
  1. CITALOPRAM (CITALOPRAM) [Suspect]
     Active Substance: CITALOPRAM HYDROBROMIDE
     Indication: ANXIETY DISORDER
  2. ALPRAZOLAM (ALPRAZOLAM) [Suspect]
     Active Substance: ALPRAZOLAM
     Indication: INSOMNIA
  3. TRAMADOL (TRAMADOL) [Suspect]
     Active Substance: TRAMADOL
     Indication: PRODUCT USED FOR UNKNOWN INDICATION
     Route: 048

REACTIONS (9)
  - Dysuria [None]
  - Dyspnoea [None]
  - Heart rate increased [None]
  - Brain oedema [None]
  - Mental status changes [None]
  - Hallucination, visual [None]
  - Oxygen saturation decreased [None]
  - Acute kidney injury [None]
  - Loss of consciousness [None]
